FAERS Safety Report 8382444-9 (Version None)
Quarter: 2012Q2

REPORT INFORMATION
  Report Type: 
  Country: None (occurrence: None)
  Receive Date: 20120524
  Receipt Date: 20120521
  Transmission Date: 20120825
  Serious: Yes (Other)
  Sender: FDA-Public Use
  Company Number: PHHY2012BR043532

PATIENT
  Age: 65 Year
  Sex: Female

DRUGS (4)
  1. BAMIFIX [Suspect]
     Dosage: UNK UKN, UNK
  2. SPIRIVA [Suspect]
     Dosage: UNK UKN, UNK
  3. FORMOTEROL FUMARATE [Suspect]
     Indication: CHRONIC OBSTRUCTIVE PULMONARY DISEASE
     Dosage: DF (2 CAPSULES OF EACH TREATMENT DAILY)
  4. FORMOTEROL FUMARATE [Suspect]
     Dosage: 1 DF, UNK

REACTIONS (11)
  - INCORRECT DOSE ADMINISTERED [None]
  - STOMATITIS [None]
  - DRUG DEPENDENCE [None]
  - THROAT IRRITATION [None]
  - DYSPNOEA [None]
  - INFLUENZA [None]
  - INSOMNIA [None]
  - DIAPHRAGMATIC DISORDER [None]
  - NASOPHARYNGITIS [None]
  - ANXIETY [None]
  - TACHYCARDIA [None]
